FAERS Safety Report 16219565 (Version 3)
Quarter: 2019Q2

REPORT INFORMATION
  Report Type: Spontaneous
  Country: US (occurrence: US)
  Receive Date: 20190420
  Receipt Date: 20190425
  Transmission Date: 20190711
  Serious: Yes (Hospitalization)
  Sender: FDA-Public Use
  Company Number: US-UNITED THERAPEUTICS-UNT-2019-006565

PATIENT
  Age: 8 Year
  Sex: Female
  Weight: 22.22 kg

DRUGS (2)
  1. REMODULIN [Suspect]
     Active Substance: TREPROSTINIL
     Indication: PULMONARY ARTERIAL HYPERTENSION
     Dosage: 0.096 ?G/KG, CONTINUING
     Route: 058
     Dates: start: 20180525
  2. ADCIRCA [Concomitant]
     Active Substance: TADALAFIL
     Indication: PULMONARY ARTERIAL HYPERTENSION
     Dosage: UNK
     Route: 065

REACTIONS (6)
  - Infusion site swelling [Unknown]
  - Infusion site erythema [Unknown]
  - Infusion site bruising [Unknown]
  - Infusion site lymphadenopathy [Unknown]
  - Infusion site pain [Unknown]
  - Infusion site infection [Unknown]

NARRATIVE: CASE EVENT DATE: 20190408
